FAERS Safety Report 5096602-2 (Version None)
Quarter: 2006Q3

REPORT INFORMATION
  Report Type: 
  Country: None (occurrence: None)
  Receive Date: 20060830
  Receipt Date: 20060821
  Transmission Date: 20061208
  Serious: Yes (Hospitalization, Other)
  Sender: FDA-Public Use
  Company Number: 2006102138

PATIENT
  Age: 43 Year
  Sex: Female
  Weight: 80 kg

DRUGS (17)
  1. LYRICA [Suspect]
     Indication: NEURALGIA
     Dosage: 600 MG (300 MG, 2 IN 1 D), ORAL
     Route: 048
     Dates: start: 20050101, end: 20060526
  2. AMITRIPTYLINE HYDROCHLORIDE [Concomitant]
  3. CEPHALEXIN [Concomitant]
  4. CHLORHEXIDINE HYDROCHLORIDE [Concomitant]
  5. DIAZEPAM [Concomitant]
  6. DIHYDROCODEINE BITARTRATE INJ [Concomitant]
  7. ERYTHROMYCIN [Concomitant]
  8. FUROSEMIDE [Concomitant]
  9. NEOMYCIN [Concomitant]
  10. NYSTATIN [Concomitant]
  11. PANTOPRAZOLE SODIUM [Concomitant]
  12. PREDNISOLONE [Concomitant]
  13. PROCHLORPERAZINE MALEATE [Concomitant]
  14. ALBUTEROL SPIROS [Concomitant]
  15. SALMETEROL [Concomitant]
  16. FLUTICASONE PROPIONATE [Concomitant]
  17. SENNA [Concomitant]

REACTIONS (8)
  - ASTHMA [None]
  - CONDITION AGGRAVATED [None]
  - COORDINATION ABNORMAL [None]
  - DIZZINESS [None]
  - DYSARTHRIA [None]
  - SOMNOLENCE [None]
  - SPEECH DISORDER [None]
  - URINARY INCONTINENCE [None]
